FAERS Safety Report 5139295-8 (Version None)
Quarter: 2006Q4

REPORT INFORMATION
  Report Type: 
  Country: None (occurrence: None)
  Receive Date: 20061024
  Receipt Date: 20061016
  Transmission Date: 20070319
  Serious: Yes (Hospitalization)
  Sender: FDA-Public Use
  Company Number: TPA2006A01379

PATIENT
  Age: 50 Year
  Sex: Female
  Weight: 105 kg

DRUGS (1)
  1. PIOGLITAZONE HCL [Suspect]
     Indication: GLUCOSE TOLERANCE IMPAIRED
     Dosage: 45 MG, UNKNOWN, PER ORAL
     Route: 048
     Dates: start: 20051123

REACTIONS (6)
  - ATELECTASIS [None]
  - BLOOD PRESSURE INCREASED [None]
  - CHOLELITHIASIS [None]
  - EFFUSION [None]
  - PANCREATIC NECROSIS [None]
  - PANCREATITIS ACUTE [None]
